FAERS Safety Report 4762100-6 (Version None)
Quarter: 2005Q3

REPORT INFORMATION
  Report Type: 
  Country: None (occurrence: None)
  Receive Date: 20050901
  Receipt Date: 20050505
  Transmission Date: 20060218
  Serious: No
  Sender: FDA-Public Use
  Company Number: 200510915BWH

PATIENT
  Sex: Male

DRUGS (1)
  1. LEVITRA [Suspect]
     Indication: ERECTILE DYSFUNCTION
     Dosage: 20 MG QD ORAL
     Route: 048
     Dates: start: 20050430, end: 20050803

REACTIONS (1)
  - ERECTILE DYSFUNCTION [None]
